FAERS Safety Report 9502770 (Version 2)
Quarter: 2013Q3

REPORT INFORMATION
  Report Type: Spontaneous
  Country: US (occurrence: US)
  Receive Date: 20130906
  Receipt Date: 20130912
  Transmission Date: 20140515
  Serious: Yes (Hospitalization, Other)
  Sender: FDA-Public Use
  Company Number: US-AMGEN-USASP2013061655

PATIENT
  Age: 31 Year
  Sex: Female

DRUGS (2)
  1. ENBREL [Suspect]
     Indication: PSORIATIC ARTHROPATHY
     Dosage: 50 MG, QWK
     Route: 065
     Dates: start: 20130325, end: 20130730
  2. METHOTREXATE [Concomitant]
     Dosage: UNK

REACTIONS (5)
  - Colitis [Recovered/Resolved]
  - Transient ischaemic attack [Recovered/Resolved]
  - Renal impairment [Recovered/Resolved]
  - Gallbladder disorder [Recovered/Resolved]
  - Thrombocytopenic purpura [Recovered/Resolved]
